FAERS Safety Report 5533348-8 (Version None)
Quarter: 2007Q4

REPORT INFORMATION
  Report Type: 
  Country: None (occurrence: None)
  Receive Date: 20071129
  Receipt Date: 20071129
  Transmission Date: 20080405
  Serious: Yes (Hospitalization)
  Sender: FDA-Public Use
  Company Number: None

PATIENT
  Sex: Female
  Weight: 20.45 kg

DRUGS (3)
  1. METHOTREXATE [Suspect]
     Dosage: 36 MG
  2. PEG-L-ASPARAGINASE (K-H) [Suspect]
     Dosage: 2050 IU
  3. VINCRISTINE SULFATE [Suspect]
     Dosage: 1.2 MG

REACTIONS (10)
  - ABDOMINAL DISTENSION [None]
  - ACIDOSIS [None]
  - BACTERIAL INFECTION [None]
  - CAECITIS [None]
  - COAGULOPATHY [None]
  - CYANOSIS [None]
  - FALL [None]
  - HYPOTENSION [None]
  - PLEURAL EFFUSION [None]
  - UNRESPONSIVE TO STIMULI [None]
